FAERS Safety Report 11139230 (Version 1)
Quarter: 2015Q2

REPORT INFORMATION
  Report Type: Spontaneous
  Country: US (occurrence: US)
  Receive Date: 20150527
  Receipt Date: 20150527
  Transmission Date: 20150821
  Serious: No
  Sender: FDA-Public Use
  Company Number: US-MALLINCKRODT-T201404210

PATIENT
  Sex: Female

DRUGS (2)
  1. H.P. ACTHAR [Suspect]
     Active Substance: CORTICOTROPIN
     Indication: SARCOIDOSIS
     Dosage: 80 UNITS, TWICE WKLY
     Route: 065
     Dates: start: 20141024
  2. PREDNISONE. [Concomitant]
     Active Substance: PREDNISONE
     Dosage: ON A TAPER

REACTIONS (7)
  - Abdominal pain [Not Recovered/Not Resolved]
  - Weight increased [Recovering/Resolving]
  - Sinusitis [Unknown]
  - Blood glucose fluctuation [Recovering/Resolving]
  - Injection site bruising [Unknown]
  - Dry mouth [Recovering/Resolving]
  - Nausea [Unknown]

NARRATIVE: CASE EVENT DATE: 2014
